FAERS Safety Report 21466610 (Version 1)
Quarter: 2022Q4

REPORT INFORMATION
  Report Type: Spontaneous
  Country: US (occurrence: None)
  Receive Date: 20221014
  Receipt Date: 20221014
  Transmission Date: 20230112
  Serious: Yes (Other)
  Sender: FDA-Public Use
  Company Number: None

PATIENT
  Age: 52 Year
  Sex: Female

DRUGS (12)
  1. DIMETHYL FUMARATE [Suspect]
     Active Substance: DIMETHYL FUMARATE
     Indication: Multiple sclerosis
     Dosage: TAKE 1 CAPSULE BY MOUTH TWICE DAILY
     Route: 048
     Dates: start: 20210223
  2. B12 CAP [Concomitant]
  3. BIOTIN POW [Concomitant]
  4. CALCIUM TAB [Concomitant]
  5. COQ10 CAP [Concomitant]
  6. MAGNESIUM CAP [Concomitant]
  7. MEGA MULTIVI POW [Concomitant]
  8. OMEGA CAP [Concomitant]
  9. TURMERIC POW [Concomitant]
  10. VITAMIN C TAB [Concomitant]
  11. VITAMIN D3 POW [Concomitant]
  12. VITAMIN E CAP [Concomitant]

REACTIONS (4)
  - Cervix carcinoma [None]
  - Mobility decreased [None]
  - Fall [None]
  - Limb mass [None]

NARRATIVE: CASE EVENT DATE: 20221014
